FAERS Safety Report 24667353 (Version 1)
Quarter: 2024Q4

REPORT INFORMATION
  Report Type: Other
  Country: US (occurrence: US)
  Receive Date: 20241126
  Receipt Date: 20241126
  Transmission Date: 20250114
  Serious: Yes (Other)
  Sender: B BRAUN
  Company Number: US-B.Braun Medical Inc.-2165993

PATIENT
  Age: 39 Year
  Sex: Female

DRUGS (7)
  1. BUPIVACAINE HYDROCHLORIDE [Suspect]
     Active Substance: BUPIVACAINE HYDROCHLORIDE
     Indication: Pain management
  2. ACETAMINOPHEN [Concomitant]
     Active Substance: ACETAMINOPHEN
  3. Intravenous magnesium [Concomitant]
  4. GABAPENTIN [Concomitant]
     Active Substance: GABAPENTIN
  5. Hydromorphone (PCA) [Concomitant]
  6. MORPHINE [Concomitant]
     Active Substance: MORPHINE
  7. KETAMINE [Concomitant]
     Active Substance: KETAMINE

REACTIONS (1)
  - Drug ineffective [Unknown]
